FAERS Safety Report 7544264-4 (Version None)
Quarter: 2011Q2

REPORT INFORMATION
  Report Type: 
  Country: None (occurrence: None)
  Receive Date: 20110613
  Receipt Date: 20070918
  Transmission Date: 20111010
  Serious: Yes (Death, Hospitalization, Other)
  Sender: FDA-Public Use
  Company Number: PHMT2007CA01669

PATIENT
  Sex: Female

DRUGS (1)
  1. SANDOSTATIN LAR [Suspect]
     Indication: CARCINOID TUMOUR
     Dosage: 60 MG EVERY 2 WEEKS
     Route: 030
     Dates: start: 20040830, end: 20070816

REACTIONS (6)
  - NEOPLASM MALIGNANT [None]
  - DEATH [None]
  - OEDEMA PERIPHERAL [None]
  - MALAISE [None]
  - DYSPHONIA [None]
  - SOMNOLENCE [None]
